FAERS Safety Report 17482495 (Version 3)
Quarter: 2020Q2

REPORT INFORMATION
  Report Type: Spontaneous
  Country: US (occurrence: US)
  Receive Date: 20200302
  Receipt Date: 20200401
  Transmission Date: 20200713
  Serious: No
  Sender: FDA-Public Use
  Company Number: US-AMGEN-USASP2020033904

PATIENT
  Age: 47 Year
  Sex: Male
  Weight: 93.5 kg

DRUGS (6)
  1. CAPOX [CAPECITABINE;OXALIPLATIN] [Concomitant]
     Indication: COLORECTAL CANCER METASTATIC
     Dosage: 1000 MILLIGRAM/SQ. METER, BID
     Dates: start: 20191126
  2. OXALIPLATIN. [Concomitant]
     Active Substance: OXALIPLATIN
     Dosage: 130 MILLIGRAM/SQ. METER
     Route: 042
  3. MVASI [Suspect]
     Active Substance: BEVACIZUMAB-AWWB
     Indication: COLORECTAL CANCER METASTATIC
     Dosage: 7.5 MILLIGRAM/KILOGRAM
     Route: 042
     Dates: start: 20191217, end: 20191217
  4. DEXAMETHASONE. [Concomitant]
     Active Substance: DEXAMETHASONE
     Dosage: 12 MILLIGRAM
     Route: 042
  5. PALONOSETRON. [Concomitant]
     Active Substance: PALONOSETRON HYDROCHLORIDE
     Dosage: 0.25 MILLIGRAM
     Route: 042
  6. CAPOX [CAPECITABINE;OXALIPLATIN] [Concomitant]
     Dosage: 130 MILLIGRAM/SQ. METER, Q3WK

REACTIONS (3)
  - Cough [Unknown]
  - Dyspnoea [Unknown]
  - Bronchospasm [Unknown]

NARRATIVE: CASE EVENT DATE: 20191217
